FAERS Safety Report 22160189 (Version 2)
Quarter: 2023Q2

REPORT INFORMATION
  Report Type: Spontaneous
  Country: US (occurrence: US)
  Receive Date: 20230331
  Receipt Date: 20230413
  Transmission Date: 20230722
  Serious: Yes (Other)
  Sender: FDA-Public Use
  Company Number: US-AMGEN-USASP2023053367

PATIENT
  Age: 74 Year
  Sex: Female
  Weight: 73.923 kg

DRUGS (1)
  1. PROLIA [Suspect]
     Active Substance: DENOSUMAB
     Indication: Osteoporosis
     Dosage: UNK, Q6MO
     Route: 065
     Dates: start: 20190118

REACTIONS (6)
  - Pneumonia [Unknown]
  - Decreased immune responsiveness [Unknown]
  - Illness [Unknown]
  - Product storage error [Unknown]
  - Intercepted product administration error [Unknown]
  - Bronchitis [Unknown]

NARRATIVE: CASE EVENT DATE: 20230127
